FAERS Safety Report 17454713 (Version 1)
Quarter: 2020Q1

REPORT INFORMATION
  Report Type: Spontaneous
  Country: US (occurrence: US)
  Receive Date: 20200225
  Receipt Date: 20200225
  Transmission Date: 20200409
  Serious: Yes (Other)
  Sender: FDA-Public Use
  Company Number: US-LUPIN PHARMACEUTICALS INC.-2020-00885

PATIENT
  Age: 32 Year
  Sex: Female

DRUGS (7)
  1. CEFTRIAXONE. [Suspect]
     Active Substance: CEFTRIAXONE
     Indication: PYELONEPHRITIS
     Dosage: UNK
     Route: 042
  2. AMPICILLIN [Suspect]
     Active Substance: AMPICILLIN
     Dosage: UNK (RESTARTED)
     Route: 065
  3. AMPICILLIN [Suspect]
     Active Substance: AMPICILLIN
     Indication: ENDOMETRITIS DECIDUAL
     Dosage: UNK
     Route: 065
  4. CLINDAMYCIN. [Suspect]
     Active Substance: CLINDAMYCIN
     Dosage: UNK,(RESTARTED)
     Route: 065
  5. GENTAMYCIN [GENTAMICIN SULFATE] [Suspect]
     Active Substance: GENTAMICIN SULFATE
     Indication: ENDOMETRITIS DECIDUAL
     Dosage: UNK
     Route: 065
  6. CLINDAMYCIN. [Suspect]
     Active Substance: CLINDAMYCIN
     Indication: ENDOMETRITIS DECIDUAL
     Dosage: UNK
     Route: 065
  7. GENTAMYCIN [GENTAMICIN SULFATE] [Suspect]
     Active Substance: GENTAMICIN SULFATE
     Dosage: UNK, (RESTARTED)
     Route: 065

REACTIONS (2)
  - Pancytopenia [Unknown]
  - Exposure during pregnancy [Unknown]
